FAERS Safety Report 17139411 (Version 1)
Quarter: 2019Q4

REPORT INFORMATION
  Report Type: Spontaneous
  Country: US (occurrence: US)
  Receive Date: 20191211
  Receipt Date: 20191211
  Transmission Date: 20200122
  Serious: Yes (Other)
  Sender: FDA-Public Use
  Company Number: US-AUROBINDO-AUR-APL-2019-074636

PATIENT
  Age: 58 Year
  Sex: Male

DRUGS (16)
  1. OXYCODONE [Concomitant]
     Active Substance: OXYCODONE
     Indication: CANCER PAIN
     Dosage: INCREASED OVER THE NEXT SEVERAL YEARS
     Route: 048
  2. NORTRIPTYLINE [Concomitant]
     Active Substance: NORTRIPTYLINE
     Indication: INSOMNIA
     Dosage: 50 MILLIGRAM, ONCE A DAY,BY MOUTH EVERY MORNING
     Route: 048
     Dates: end: 2018
  3. HYDROMORPHONE [Concomitant]
     Active Substance: HYDROMORPHONE
     Dosage: 4 MILLIGRAM, EVERY HOUR,BASAL RATE AND 3 MG EVERY 20 MINUTES DEMAND DOSE
     Route: 042
     Dates: start: 2018
  4. HYDROMORPHONE [Concomitant]
     Active Substance: HYDROMORPHONE
     Dosage: 4 MILLIGRAM,INCREASED TO 6MG/H BASAL RATE AND 4MG EVERY 15 MINUTES
     Route: 042
     Dates: start: 2018, end: 2018
  5. OXYCODONE [Concomitant]
     Active Substance: OXYCODONE
     Dosage: MOUTH EVERY 4 HOURS AS NEEDED
     Route: 048
     Dates: start: 2013
  6. HYDROMORPHONE [Concomitant]
     Active Substance: HYDROMORPHONE
     Dosage: 6 MILLIGRAM, EVERY HOUR,INCREASED TO 6MG/H BASAL RATE AND 4MG EVERY 15 MINUTES
     Route: 042
     Dates: start: 2018, end: 2018
  7. TRAZODONE [Concomitant]
     Active Substance: TRAZODONE HYDROCHLORIDE
     Indication: INSOMNIA
     Dosage: 50 MILLIGRAM, ONCE A DAY,BY MOUTH
     Route: 048
     Dates: end: 2018
  8. FENTANYL. [Concomitant]
     Active Substance: FENTANYL
     Dosage: 150 MICROGRAM, EVERY HOUR
     Route: 062
     Dates: start: 2018
  9. HYDROMORPHONE [Concomitant]
     Active Substance: HYDROMORPHONE
     Dosage: 4 MILLIGRAM, EVERY HOUR,IV HYDROMORPHONE PATIENT-CONTROLLED ANALGESIC
     Route: 042
     Dates: start: 2018
  10. HYDROMORPHONE [Concomitant]
     Active Substance: HYDROMORPHONE
     Dosage: 2 MILLIGRAM, EVERY HOUR
     Route: 042
     Dates: start: 2018
  11. FENTANYL. [Concomitant]
     Active Substance: FENTANYL
     Indication: CANCER PAIN
     Dosage: 200 MICROGRAM, EVERY HOUR,INCREASED SHORTLY BEFORE
     Route: 062
     Dates: start: 2018
  12. FENTANYL. [Concomitant]
     Active Substance: FENTANYL
     Dosage: 100 MICROGRAM, EVERY HOUR
     Route: 062
     Dates: start: 2018
  13. HYDROMORPHONE [Concomitant]
     Active Substance: HYDROMORPHONE
     Indication: CANCER PAIN
     Dosage: 3 MILLIGRAM,4 MG/H BASAL RATE AND 3 MG EVERY 20 MINUTES
     Route: 042
     Dates: start: 2018
  14. HYDROMORPHONE [Concomitant]
     Active Substance: HYDROMORPHONE
     Dosage: 2 MILLIGRAM
     Route: 042
     Dates: start: 2018
  15. LORAZEPAM. [Suspect]
     Active Substance: LORAZEPAM
     Indication: ANXIETY
     Dosage: 1 MILLIGRAM, TWO TIMES A DAY
     Route: 048
     Dates: end: 2018
  16. OXYCODONE [Concomitant]
     Active Substance: OXYCODONE
     Dosage: 20 MG BY MOUTH EVERY 8 HOURS
     Route: 048
     Dates: start: 2018, end: 2018

REACTIONS (4)
  - Toxicity to various agents [Unknown]
  - Tachyphylaxis [Unknown]
  - Delirium [Unknown]
  - Confusional state [Unknown]

NARRATIVE: CASE EVENT DATE: 2018
